FAERS Safety Report 10573463 (Version 1)
Quarter: 2014Q4

REPORT INFORMATION
  Report Type: Spontaneous
  Country: CN (occurrence: None)
  Receive Date: 20141030
  Receipt Date: 20141030
  Transmission Date: 20150529
  Serious: Yes (Other)
  Sender: FDA-Public Use
  Company Number: PHHY2013CN011198

PATIENT
  Sex: Female

DRUGS (1)
  1. SEBIVO [Suspect]
     Active Substance: TELBIVUDINE
     Dosage: 1 TABLET/DAY

REACTIONS (3)
  - Liver function test abnormal [None]
  - Drug ineffective [None]
  - Hepatic function abnormal [None]

NARRATIVE: CASE EVENT DATE: 20130219
